FAERS Safety Report 9605948 (Version 1)
Quarter: 2013Q4

REPORT INFORMATION
  Report Type: Spontaneous
  Country: SE (occurrence: SE)
  Receive Date: 20131008
  Receipt Date: 20131008
  Transmission Date: 20140711
  Serious: Yes (Hospitalization)
  Sender: FDA-Public Use
  Company Number: SE-PFIZER INC-2013288511

PATIENT
  Age: 52 Year
  Sex: Male

DRUGS (2)
  1. CORDARONE [Suspect]
     Indication: ATRIAL FIBRILLATION
     Dosage: 200 MG, UNK
     Route: 065
     Dates: start: 201306, end: 20130704
  2. WARAN [Concomitant]
     Dosage: UNK

REACTIONS (5)
  - Syncope [Unknown]
  - Nausea [Unknown]
  - Paraesthesia [Unknown]
  - Dizziness [Unknown]
  - Nightmare [Unknown]
